FAERS Safety Report 8588064-5 (Version None)
Quarter: 2012Q3

REPORT INFORMATION
  Report Type: 
  Country: None (occurrence: None)
  Receive Date: 20120813
  Receipt Date: 20120810
  Transmission Date: 20120928
  Serious: No
  Sender: FDA-Public Use
  Company Number: US-PFIZER INC-2012195941

PATIENT
  Age: 68 Year
  Sex: Female
  Weight: 59.864 kg

DRUGS (3)
  1. WELLBUTRIN [Concomitant]
     Dosage: UNK
  2. XANAX [Suspect]
     Dosage: 0.5 MG, 1X/DAY
     Route: 048
     Dates: start: 20120101
  3. XANAX [Suspect]
     Indication: ANXIETY
     Dosage: 1 MG, 1X/DAY
     Route: 048
     Dates: start: 20100201, end: 20120101

REACTIONS (2)
  - EYE PAIN [None]
  - IRITIS [None]
